FAERS Safety Report 11040206 (Version 1)
Quarter: 2015Q2

REPORT INFORMATION
  Report Type: Spontaneous
  Country: US (occurrence: US)
  Receive Date: 20150416
  Receipt Date: 20150416
  Transmission Date: 20150821
  Serious: Yes (Other)
  Sender: FDA-Public Use
  Company Number: US-PFIZER INC-2015127623

PATIENT
  Sex: Male

DRUGS (1)
  1. VIAGRA [Suspect]
     Active Substance: SILDENAFIL CITRATE
     Indication: ERECTILE DYSFUNCTION
     Dosage: 50 MG, UNK (TOOK 5 TABLETS BY MOUTH)
     Route: 048
     Dates: start: 20150409

REACTIONS (5)
  - Extra dose administered [Unknown]
  - Penis disorder [Not Recovered/Not Resolved]
  - Cyanopsia [Not Recovered/Not Resolved]
  - Chloropsia [Not Recovered/Not Resolved]
  - Erection increased [Not Recovered/Not Resolved]

NARRATIVE: CASE EVENT DATE: 201504
